FAERS Safety Report 7760264-3 (Version None)
Quarter: 2011Q3

REPORT INFORMATION
  Report Type: 
  Country: None (occurrence: None)
  Receive Date: 20110919
  Receipt Date: 20110915
  Transmission Date: 20111222
  Serious: Yes (Other)
  Sender: FDA-Public Use
  Company Number: CA-GLAXOSMITHKLINE-B0747701A

PATIENT
  Age: 41 Year
  Sex: Female

DRUGS (4)
  1. LAMOTRIGINE [Suspect]
     Route: 065
     Dates: start: 20070101
  2. RISPERIDONE [Concomitant]
  3. CLOZAPINE [Suspect]
     Indication: SCHIZOPHRENIA
     Route: 048
     Dates: start: 20020101
  4. HALOPERIDOL [Concomitant]

REACTIONS (4)
  - PSYCHIATRIC SYMPTOM [None]
  - AGRANULOCYTOSIS [None]
  - EXTRAPYRAMIDAL DISORDER [None]
  - SEDATION [None]
